FAERS Safety Report 23128085 (Version 1)
Quarter: 2023Q4

REPORT INFORMATION
  Report Type: Spontaneous
  Country: US (occurrence: US)
  Receive Date: 20231031
  Receipt Date: 20231031
  Transmission Date: 20240110
  Serious: No
  Sender: FDA-Public Use
  Company Number: US-BEH-2023164691

PATIENT
  Age: 55 Year
  Sex: Male

DRUGS (2)
  1. HIZENTRA [Suspect]
     Active Substance: HUMAN IMMUNOGLOBULIN G
     Indication: Hypogammaglobulinaemia
     Dosage: 22 GRAM, QW
     Route: 058
     Dates: start: 202308
  2. HIZENTRA [Suspect]
     Active Substance: HUMAN IMMUNOGLOBULIN G
     Indication: Selective IgA immunodeficiency

REACTIONS (2)
  - Gastroenteritis viral [Unknown]
  - Discomfort [Unknown]
